FAERS Safety Report 7911194-5 (Version None)
Quarter: 2011Q4

REPORT INFORMATION
  Report Type: 
  Country: None (occurrence: None)
  Receive Date: 20111110
  Receipt Date: 20111110
  Transmission Date: 20120403
  Serious: No
  Sender: FDA-Public Use
  Company Number: None

PATIENT
  Sex: Female

DRUGS (8)
  1. REVLIMID [Suspect]
     Indication: MULTIPLE MYELOMA
     Dosage: REVLIMID 15MG DAILY X14D/21D ORALLY
     Route: 048
     Dates: start: 20110914
  2. REVLIMID [Suspect]
     Indication: MULTIPLE MYELOMA
     Dosage: REVLIMID 15MG DAILY X14D/21D ORALLY
     Route: 048
     Dates: start: 20111004
  3. ACYCLOVIR [Concomitant]
  4. M.V.I. [Concomitant]
  5. LACTOBACILLUS [Concomitant]
  6. PAMIDRONATE DISODIUM [Concomitant]
  7. APAP TAB [Concomitant]
  8. FAMOTIDINE [Concomitant]

REACTIONS (1)
  - RASH MACULAR [None]
